FAERS Safety Report 6054100-3 (Version None)
Quarter: 2009Q1

REPORT INFORMATION
  Report Type: 
  Country: None (occurrence: None)
  Receive Date: 20090127
  Receipt Date: 20090114
  Transmission Date: 20090719
  Serious: Yes (Life-Threatening)
  Sender: FDA-Public Use
  Company Number: GB-PFIZER INC-2009157011

PATIENT

DRUGS (9)
  1. AMLODIPINE BESYLATE [Suspect]
     Route: 048
  2. ATORVASTATIN CALCIUM [Suspect]
     Route: 048
  3. TEMAZEPAM [Suspect]
     Route: 048
  4. ACETYLSALICYLIC ACID [Suspect]
     Route: 048
  5. LANSOPRAZOLE [Suspect]
     Route: 048
  6. RANITIDINE [Suspect]
     Route: 048
  7. GALENIC /FLUTICASONE/SALMETEROL/ [Suspect]
     Indication: ASTHMA
  8. VALSARTAN [Suspect]
     Route: 048
  9. SALBUTAMOL SULFATE [Suspect]

REACTIONS (2)
  - ASTHMA [None]
  - LOWER RESPIRATORY TRACT INFECTION [None]
